FAERS Safety Report 7634498-2 (Version None)
Quarter: 2011Q3

REPORT INFORMATION
  Report Type: 
  Country: None (occurrence: None)
  Receive Date: 20110725
  Receipt Date: 20110719
  Transmission Date: 20111222
  Serious: Yes (Death, Hospitalization, Disabling, Other)
  Sender: FDA-Public Use
  Company Number: US-CELGENEUS-163-21880-11043713

PATIENT
  Sex: Male

DRUGS (3)
  1. PLATELETS [Concomitant]
     Indication: TRANSFUSION
     Route: 051
  2. ANTIBIOTICS [Concomitant]
     Route: 065
  3. REVLIMID [Suspect]
     Dosage: 10 MILLIGRAM
     Route: 048
     Dates: start: 20110101

REACTIONS (2)
  - PNEUMONIA [None]
  - PANCYTOPENIA [None]
